FAERS Safety Report 18126572 (Version 1)
Quarter: 2020Q3

REPORT INFORMATION
  Report Type: Spontaneous
  Country: CA (occurrence: CA)
  Receive Date: 20200808
  Receipt Date: 20200808
  Transmission Date: 20201103
  Serious: Yes (Other)
  Sender: FDA-Public Use
  Company Number: CA-TEVA-2020-CA-1811292

PATIENT
  Sex: Female

DRUGS (2)
  1. CEFADROXIL. [Suspect]
     Active Substance: CEFADROXIL
     Route: 065
  2. PENICILLIN [Suspect]
     Active Substance: PENICILLIN

REACTIONS (1)
  - Rash maculo-papular [Not Recovered/Not Resolved]
